FAERS Safety Report 22285336 (Version 1)
Quarter: 2023Q2

REPORT INFORMATION
  Report Type: Spontaneous
  Country: US (occurrence: US)
  Receive Date: 20230504
  Receipt Date: 20230504
  Transmission Date: 20230721
  Serious: No
  Sender: FDA-Public Use
  Company Number: US-MYLANLABS-2023M1044662

PATIENT
  Sex: Female
  Weight: 56.7 kg

DRUGS (1)
  1. ESTRADIOL [Suspect]
     Active Substance: ESTRADIOL
     Indication: Vulvovaginal dryness
     Dosage: 0.01 PERCENT
     Route: 067

REACTIONS (3)
  - Device difficult to use [Unknown]
  - Device physical property issue [Unknown]
  - Product contamination [Unknown]
